FAERS Safety Report 10283935 (Version 1)
Quarter: 2014Q3

REPORT INFORMATION
  Report Type: Report from Study
  Country: BR (occurrence: BR)
  Receive Date: 20140708
  Receipt Date: 20140708
  Transmission Date: 20150326
  Serious: Yes (Other)
  Sender: FDA-Public Use
  Company Number: BR-ABBVIE-14P-020-1256339-00

PATIENT
  Sex: Female
  Weight: 66 kg

DRUGS (3)
  1. SYNTHROID [Suspect]
     Active Substance: LEVOTHYROXINE SODIUM
     Indication: THYROID DISORDER
     Dosage: DAILY DOSE: 75MCG; IN THE MORNING; CURRENTLY ALTERNATES BETWEEN 75MCG AND 88MCG PER DAY
     Route: 048
  2. SYNTHROID [Suspect]
     Active Substance: LEVOTHYROXINE SODIUM
     Dosage: INSTRUCTED TO CONTINUE TREATMENT WITH SYNTHROID 110MCG AFTER THE REMOVAL OF THYROID
     Route: 048
  3. SYNTHROID [Suspect]
     Active Substance: LEVOTHYROXINE SODIUM
     Dosage: DAILY DOSE: 88MCG; CURRENTLY ALTERNATES BETWEEN 75MCG AND 88MCG OF SYNTHROID
     Route: 048

REACTIONS (4)
  - Thyroidectomy [Recovered/Resolved]
  - Hypertension [Unknown]
  - Dysphonia [Unknown]
  - Malaise [Unknown]
